FAERS Safety Report 20136313 (Version 1)
Quarter: 2021Q4

REPORT INFORMATION
  Report Type: Report from Study
  Country: DE (occurrence: DE)
  Receive Date: 20211201
  Receipt Date: 20211201
  Transmission Date: 20220303
  Serious: Yes (Other)
  Sender: FDA-Public Use
  Company Number: DE-TAKEDA-2021TUS075935

PATIENT
  Age: 49 Year
  Sex: Female

DRUGS (12)
  1. TEDUGLUTIDE [Suspect]
     Active Substance: TEDUGLUTIDE
     Indication: Short-bowel syndrome
     Dosage: 1.55 MILLIGRAM, QD
     Route: 065
     Dates: start: 20171026, end: 20171029
  2. TEDUGLUTIDE [Suspect]
     Active Substance: TEDUGLUTIDE
     Indication: Short-bowel syndrome
     Dosage: 1.55 MILLIGRAM, QD
     Route: 065
     Dates: start: 20171026, end: 20171029
  3. TEDUGLUTIDE [Suspect]
     Active Substance: TEDUGLUTIDE
     Indication: Short-bowel syndrome
     Dosage: 1.55 MILLIGRAM, QD
     Route: 065
     Dates: start: 20171026, end: 20171029
  4. TEDUGLUTIDE [Suspect]
     Active Substance: TEDUGLUTIDE
     Indication: Short-bowel syndrome
     Dosage: 1.55 MILLIGRAM, QD
     Route: 065
     Dates: start: 20171026, end: 20171029
  5. TEDUGLUTIDE [Suspect]
     Active Substance: TEDUGLUTIDE
     Dosage: 1.6 UNK
     Route: 065
     Dates: start: 20171130
  6. TEDUGLUTIDE [Suspect]
     Active Substance: TEDUGLUTIDE
     Dosage: 1.6 UNK
     Route: 065
     Dates: start: 20171130
  7. TEDUGLUTIDE [Suspect]
     Active Substance: TEDUGLUTIDE
     Dosage: 1.6 UNK
     Route: 065
     Dates: start: 20171130
  8. TEDUGLUTIDE [Suspect]
     Active Substance: TEDUGLUTIDE
     Dosage: 1.6 UNK
     Route: 065
     Dates: start: 20171130
  9. ELECTROLYTES NOS\MINERALS [Concomitant]
     Active Substance: ELECTROLYTES NOS\MINERALS
     Indication: Nutritional supplementation
     Dosage: 10 MILLILITER, QD
     Route: 042
     Dates: start: 20200522
  10. KCL [Concomitant]
     Active Substance: POTASSIUM CHLORIDE
     Indication: Nutritional supplementation
     Dosage: 20 MILLILITER, TID
     Route: 042
     Dates: start: 20200522
  11. Jonosteril [Concomitant]
     Indication: Nutritional supplementation
     Dosage: 1 LITER, QD
     Route: 042
     Dates: start: 20200522
  12. NUTRIFLEX LIPID PERI [Concomitant]
     Indication: Nutritional supplementation
     Dosage: 1.86 LITER, QD
     Route: 042
     Dates: start: 20210522

REACTIONS (1)
  - Device related infection [Recovered/Resolved]

NARRATIVE: CASE EVENT DATE: 20210701
